FAERS Safety Report 24583297 (Version 6)
Quarter: 2025Q4

REPORT INFORMATION
  Report Type: Report from Study
  Country: EG (occurrence: EG)
  Receive Date: 20241106
  Receipt Date: 20251030
  Transmission Date: 20260118
  Serious: Yes (Disabling)
  Sender: SANDOZ
  Company Number: EG-SANDOZ-SDZ2024EG088395

PATIENT
  Sex: Female

DRUGS (1)
  1. OMNITROPE [Suspect]
     Active Substance: SOMATROPIN
     Indication: Growth hormone deficiency
     Dosage: 9.5 MG, STRENGTH: 10 MG, STOP DATE: 14-DEC-2024
     Route: 058
     Dates: start: 20230208

REACTIONS (9)
  - Administration site movement impairment [Not Recovered/Not Resolved]
  - Dyspnoea [Unknown]
  - Injection site pain [Not Recovered/Not Resolved]
  - Headache [Not Recovered/Not Resolved]
  - Circumstance or information capable of leading to medication error [Unknown]
  - Drug administered in wrong device [Unknown]
  - Device mechanical issue [Unknown]
  - Product dose omission issue [Unknown]
  - Device issue [Unknown]

NARRATIVE: CASE EVENT DATE: 20240101
